FAERS Safety Report 25993446 (Version 2)
Quarter: 2025Q4

REPORT INFORMATION
  Report Type: Spontaneous
  Country: US (occurrence: US)
  Receive Date: 20251104
  Receipt Date: 20251128
  Transmission Date: 20260117
  Serious: No
  Sender: LEO PHARM
  Company Number: US-LEO Pharma-383904

PATIENT
  Age: 16 Year
  Sex: Male

DRUGS (2)
  1. ADBRY [Suspect]
     Active Substance: TRALOKINUMAB-LDRM
     Indication: Eczema
     Dosage: TITRATION DOSING: ADBRY 150 MG/ML SYRINGE, INJECT 2 SYRINGES (300MG) UNDER THE SKIN ON DAY 1 (10/24/
     Route: 058
     Dates: start: 20251024
  2. ADBRY [Suspect]
     Active Substance: TRALOKINUMAB-LDRM
     Indication: Eczema
     Dosage: TITRATION DOSING: ADBRY 150 MG/ML SYRINGE, INJECT 2 SYRINGES (300MG) UNDER THE SKIN ON DAY 1 (10/24/
     Route: 058
     Dates: start: 20251024

REACTIONS (2)
  - Eczema [Unknown]
  - Pruritus [Unknown]

NARRATIVE: CASE EVENT DATE: 20251024
